FAERS Safety Report 8116221-0 (Version None)
Quarter: 2012Q1

REPORT INFORMATION
  Report Type: 
  Country: None (occurrence: None)
  Receive Date: 20120206
  Receipt Date: 20120125
  Transmission Date: 20120608
  Serious: Yes (Death, Life-Threatening, Hospitalization)
  Sender: FDA-Public Use
  Company Number: US-MUTUAL PHARMACEUTICAL COMPANY, INC.-FBRC20120001

PATIENT
  Age: 50 Year
  Sex: Female

DRUGS (4)
  1. METOPROLOL [Suspect]
     Indication: PRODUCT USED FOR UNKNOWN INDICATION
     Route: 048
     Dates: end: 20100101
  2. COCAINE [Suspect]
     Dates: end: 20100101
  3. BUPROPION HCL [Suspect]
     Indication: PRODUCT USED FOR UNKNOWN INDICATION
     Route: 048
     Dates: end: 20100101
  4. FENOFIBRATE [Suspect]
     Indication: PRODUCT USED FOR UNKNOWN INDICATION
     Route: 048
     Dates: end: 20100101

REACTIONS (18)
  - CARDIAC ARREST [None]
  - HYPOTENSION [None]
  - ACUTE RESPIRATORY DISTRESS SYNDROME [None]
  - BLOOD THYROID STIMULATING HORMONE INCREASED [None]
  - TOXICITY TO VARIOUS AGENTS [None]
  - FLUID OVERLOAD [None]
  - RENAL FAILURE ACUTE [None]
  - THYROXINE FREE DECREASED [None]
  - BLOOD PH DECREASED [None]
  - PULMONARY OEDEMA [None]
  - AREFLEXIA [None]
  - COMPLETED SUICIDE [None]
  - BRADYCARDIA [None]
  - RESPIRATION ABNORMAL [None]
  - PCO2 DECREASED [None]
  - SOMNOLENCE [None]
  - CONVULSION [None]
  - BLOOD CALCIUM DECREASED [None]
